FAERS Safety Report 9382323 (Version 4)
Quarter: 2014Q1

REPORT INFORMATION
  Report Type: Spontaneous
  Country: AU (occurrence: AU)
  Receive Date: 20130703
  Receipt Date: 20140209
  Transmission Date: 20141002
  Serious: Yes (Death)
  Sender: FDA-Public Use
  Company Number: AU-PFIZER INC-2013195493

PATIENT
  Age: 15 Year
  Sex: Male

DRUGS (3)
  1. QUETIAPINE FUMARATE [Suspect]
     Dosage: UNK
  2. MORPHINE SULFATE [Interacting]
     Dosage: UNK
     Route: 048
  3. OXYCODONE HYDROCHLORIDE [Interacting]
     Dosage: UNK
     Route: 048

REACTIONS (2)
  - Overdose [Fatal]
  - Drug interaction [Fatal]
